FAERS Safety Report 7939867-9 (Version None)
Quarter: 2011Q4

REPORT INFORMATION
  Report Type: 
  Country: None (occurrence: None)
  Receive Date: 20111125
  Receipt Date: 20111122
  Transmission Date: 20120403
  Serious: Yes (Life-Threatening)
  Sender: FDA-Public Use
  Company Number: BR-ABBOTT-11P-020-0877279-00

PATIENT
  Age: 20 Year
  Sex: Male

DRUGS (1)
  1. DEPAKOTE [Suspect]
     Indication: PRODUCT USED FOR UNKNOWN INDICATION

REACTIONS (3)
  - SOMNOLENCE [None]
  - SUICIDE ATTEMPT [None]
  - OVERDOSE [None]
